FAERS Safety Report 25324280 (Version 1)
Quarter: 2025Q2

REPORT INFORMATION
  Report Type: Spontaneous
  Country: TN (occurrence: TN)
  Receive Date: 20250516
  Receipt Date: 20250516
  Transmission Date: 20250716
  Serious: Yes (Death, Other)
  Sender: MYLAN
  Company Number: TN-MYLANLABS-2025M1039473

PATIENT
  Age: 20 Year
  Sex: Female

DRUGS (8)
  1. ETOPOSIDE [Suspect]
     Active Substance: ETOPOSIDE
     Indication: Ewing^s sarcoma
  2. ETOPOSIDE [Suspect]
     Active Substance: ETOPOSIDE
     Indication: Nasal sinus cancer
     Route: 065
  3. ETOPOSIDE [Suspect]
     Active Substance: ETOPOSIDE
     Indication: Brain neoplasm
     Route: 065
  4. ETOPOSIDE [Suspect]
     Active Substance: ETOPOSIDE
  5. CISPLATIN [Suspect]
     Active Substance: CISPLATIN
     Indication: Ewing^s sarcoma
  6. CISPLATIN [Suspect]
     Active Substance: CISPLATIN
     Indication: Nasal sinus cancer
     Route: 065
  7. CISPLATIN [Suspect]
     Active Substance: CISPLATIN
     Indication: Brain neoplasm
     Route: 065
  8. CISPLATIN [Suspect]
     Active Substance: CISPLATIN

REACTIONS (5)
  - Drug ineffective for unapproved indication [Fatal]
  - Mucosal inflammation [Unknown]
  - Deafness [Unknown]
  - Vomiting [Unknown]
  - Off label use [Unknown]
